FAERS Safety Report 16267750 (Version 1)
Quarter: 2019Q2

REPORT INFORMATION
  Report Type: Spontaneous
  Country: KR (occurrence: KR)
  Receive Date: 20190503
  Receipt Date: 20190503
  Transmission Date: 20190711
  Serious: Yes (Hospitalization)
  Sender: FDA-Public Use
  Company Number: KR-009507513-1903KOR009399

PATIENT
  Sex: Male

DRUGS (6)
  1. KEYTRUDA [Suspect]
     Active Substance: PEMBROLIZUMAB
     Indication: CHOLANGIOCARCINOMA
     Dosage: 100MG/4ML; QUANTITY 1, DAY 1
     Dates: start: 20190312, end: 20190312
  2. KEYTRUDA [Suspect]
     Active Substance: PEMBROLIZUMAB
     Dosage: 100MG/4ML; QUANTITY 1, DAY 1
     Dates: start: 20190318, end: 20190318
  3. FREAMINE III NOS [Concomitant]
     Active Substance: AMINO ACIDS
     Dosage: QUANTITY 1 DAY 1
     Dates: start: 20190312
  4. ENCOVER [Concomitant]
     Dosage: FORMULATION: SOLUTION; QUANTITY 2 DAY 7
     Dates: start: 20190312
  5. BANAN [Concomitant]
     Active Substance: CEFPODOXIME PROXETIL
     Dosage: QUANTITY 2 DAY 5
     Route: 048
     Dates: start: 20190312
  6. SODIUM CHLORIDE. [Concomitant]
     Active Substance: SODIUM CHLORIDE
     Dosage: QUANTITY 1 DAY 1
     Dates: start: 20190312

REACTIONS (3)
  - Adverse event [Unknown]
  - Inappropriate schedule of product administration [Unknown]
  - Product use in unapproved indication [Unknown]

NARRATIVE: CASE EVENT DATE: 201903
